FAERS Safety Report 5767143-1 (Version None)
Quarter: 2008Q2

REPORT INFORMATION
  Report Type: 
  Country: None (occurrence: None)
  Receive Date: 20080609
  Receipt Date: 20080526
  Transmission Date: 20081010
  Serious: Yes (Hospitalization)
  Sender: FDA-Public Use
  Company Number: 2008AL005364

PATIENT
  Sex: Female

DRUGS (6)
  1. DIGOXIN [Suspect]
     Dosage: 0.25MG DAILY PO
     Route: 048
     Dates: start: 20080101, end: 20080516
  2. DIOVAN [Concomitant]
  3. FOLIC ACID [Concomitant]
  4. VITAMINS [Concomitant]
  5. LIPITOR [Concomitant]
  6. CALCIUM [Concomitant]

REACTIONS (4)
  - CHEST DISCOMFORT [None]
  - NAUSEA [None]
  - THERAPEUTIC AGENT TOXICITY [None]
  - VOMITING [None]
